FAERS Safety Report 8204529-X (Version None)
Quarter: 2012Q1

REPORT INFORMATION
  Report Type: 
  Country: None (occurrence: None)
  Receive Date: 20120313
  Receipt Date: 20120307
  Transmission Date: 20120608
  Serious: Yes (Hospitalization, Other)
  Sender: FDA-Public Use
  Company Number: SE-PFIZER INC-2011155481

PATIENT
  Age: 62 Year
  Sex: Female

DRUGS (4)
  1. REMICADE [Suspect]
     Dosage: 2ND INFUSION
     Dates: start: 20101119
  2. SULFASALAZINE [Suspect]
     Indication: COLITIS ULCERATIVE
     Dosage: UNK
     Route: 048
     Dates: end: 20110401
  3. REMICADE [Suspect]
     Dosage: UNK
     Dates: start: 20100928
  4. HUMIRA [Suspect]
     Dosage: UNK
     Dates: start: 20101214, end: 20110401

REACTIONS (3)
  - ALVEOLITIS [None]
  - SEPSIS [None]
  - ANAPHYLACTOID REACTION [None]
